FAERS Safety Report 4555394-3 (Version None)
Quarter: 2005Q1

REPORT INFORMATION
  Report Type: 
  Country: None (occurrence: None)
  Receive Date: 20050118
  Receipt Date: 20050118
  Transmission Date: 20050727
  Serious: Yes (Hospitalization)
  Sender: FDA-Public Use
  Company Number: None

PATIENT
  Age: 50 Year
  Sex: Male

DRUGS (12)
  1. DICLOFENAC [Suspect]
     Indication: ARTHRITIS
     Dosage: 75 MG TID ORAL
     Route: 048
     Dates: start: 20040914, end: 20041016
  2. ASPIRIN [Concomitant]
  3. CITALOPRAM HYDROBROMIDE [Concomitant]
  4. CYCLOBENZAPRINE HCL [Concomitant]
  5. .. [Concomitant]
  6. DIPHENHYDRAMINE HCL [Concomitant]
  7. FELODIPINE [Concomitant]
  8. FOSINOPRIL NA [Concomitant]
  9. FUROSEMIDE [Concomitant]
  10. ISOSORBIDE DINITRATE [Concomitant]
  11. METOPROLOL TARTRATE [Concomitant]
  12. SELENIUM SULFIDE [Concomitant]

REACTIONS (5)
  - FAECES DISCOLOURED [None]
  - GASTRIC ULCER [None]
  - GASTRITIS [None]
  - HAEMATEMESIS [None]
  - MELAENA [None]
